FAERS Safety Report 24780375 (Version 1)
Quarter: 2024Q4

REPORT INFORMATION
  Report Type: Spontaneous
  Country: IR (occurrence: IR)
  Receive Date: 20241227
  Receipt Date: 20241227
  Transmission Date: 20250115
  Serious: Yes (Other)
  Sender: ALKEM
  Company Number: IR-ALKEM LABORATORIES LIMITED-IR-ALKEM-2024-26224

PATIENT
  Age: 32 Year
  Sex: Male

DRUGS (1)
  1. METHADONE HYDROCHLORIDE [Suspect]
     Active Substance: METHADONE HYDROCHLORIDE
     Indication: Product used for unknown indication
     Dosage: 2 GRAM, QD (PER DAY)
     Route: 065

REACTIONS (2)
  - Brain injury [Unknown]
  - Intentional product misuse [Unknown]
